FAERS Safety Report 6423846-7 (Version None)
Quarter: 2009Q4

REPORT INFORMATION
  Report Type: 
  Country: None (occurrence: None)
  Receive Date: 20091028
  Receipt Date: 20091019
  Transmission Date: 20100525
  Serious: Yes (Death)
  Sender: FDA-Public Use
  Company Number: 412657

PATIENT
  Age: 13 Year
  Sex: Male

DRUGS (9)
  1. ETOPOSIDE [Suspect]
     Indication: NON-HODGKIN'S LYMPHOMA
     Dosage: 100 MG/M2, 1 DAY, INTRAVENOUS
     Route: 042
     Dates: start: 20090715, end: 20090719
  2. METHOTREXATE [Suspect]
     Indication: T-CELL LYMPHOMA
     Dosage: INTRATHECAL
     Route: 037
     Dates: start: 20090713, end: 20090713
  3. VINCRISTINE [Suspect]
     Indication: T-CELL LYMPHOMA
     Dates: start: 20090710, end: 20090710
  4. VINCRISTINE [Suspect]
     Indication: T-CELL LYMPHOMA
     Dates: start: 20090813, end: 20090813
  5. DEXAMETHASONE [Suspect]
     Indication: T-CELL LYMPHOMA
     Dosage: 10 MG/M2, 1 DAY,
     Dates: start: 20090710, end: 20090813
  6. CYCLOPHOSPHAMIDE [Suspect]
     Indication: NON-HODGKIN'S LYMPHOMA
     Dosage: 300 MG/M2, 1 DAY,
     Dates: start: 20090715, end: 20090719
  7. (ERWINASE) [Suspect]
     Indication: T-CELL LYMPHOMA
     Dates: start: 20090715
  8. (CLOFARABINE) [Suspect]
     Indication: NON-HODGKIN'S LYMPHOMA
     Dosage: 40 MG/M2, 1 DAY, INTRAVENOUS
     Route: 042
     Dates: start: 20090715, end: 20090719
  9. (NELARABINE) [Suspect]
     Indication: T-CELL LYMPHOMA
     Dates: start: 20090818

REACTIONS (2)
  - B-CELL LYMPHOMA [None]
  - MALIGNANT NEOPLASM PROGRESSION [None]
